FAERS Safety Report 5621541-5 (Version None)
Quarter: 2008Q1

REPORT INFORMATION
  Report Type: 
  Country: None (occurrence: None)
  Receive Date: 20080114
  Receipt Date: 20070605
  Transmission Date: 20080703
  Serious: Yes (Hospitalization)
  Sender: FDA-Public Use
  Company Number: A03200703543

PATIENT
  Age: 63 Year
  Sex: Male
  Weight: 102.0593 kg

DRUGS (12)
  1. PLAVIX [Suspect]
     Indication: STENT PLACEMENT
     Dosage: 75 MG QD - ORAL
     Route: 048
     Dates: start: 20061009
  2. LYRICA [Suspect]
  3. ASPIRIN [Suspect]
     Dosage: 81 MG QD - ORAL
     Route: 048
  4. PANTOPRAZOLE SODIUM [Concomitant]
  5. ATORVASTATIN CALCIUM [Concomitant]
  6. METOPROLOL TARTRATE [Concomitant]
  7. GLIMEPIRIDE [Concomitant]
  8. RABEPRAZOLE SODIUM [Concomitant]
  9. METFORMIN HCL [Concomitant]
  10. PENICILLIN G [Concomitant]
  11. METOPROLOL SUCCINATE [Concomitant]
  12. ROSIGLITAZONE MALEATE [Concomitant]

REACTIONS (12)
  - ABDOMINAL DISCOMFORT [None]
  - ANXIETY [None]
  - BACK PAIN [None]
  - DECREASED APPETITE [None]
  - DRUG INTERACTION [None]
  - DYSPNOEA [None]
  - FACIAL PAIN [None]
  - HEADACHE [None]
  - INSOMNIA [None]
  - PANCREATITIS [None]
  - SYNCOPE [None]
  - VOMITING [None]
